FAERS Safety Report 7731781-7 (Version None)
Quarter: 2011Q3

REPORT INFORMATION
  Report Type: 
  Country: None (occurrence: None)
  Receive Date: 20110906
  Receipt Date: 20110831
  Transmission Date: 20111222
  Serious: Yes (Other)
  Sender: FDA-Public Use
  Company Number: PHHY2011US30377

PATIENT
  Sex: Female

DRUGS (5)
  1. GILENYA [Suspect]
     Indication: MULTIPLE SCLEROSIS
     Dosage: 0.5 MG, QD
     Route: 048
     Dates: start: 20110309
  2. NEXIUM [Concomitant]
     Indication: GASTRITIS
     Dosage: 40 MG, DAILY
     Route: 048
  3. ACE INHIBITOR NOS [Concomitant]
     Dosage: UNK UKN, UNK
  4. LAMOTRIGINE [Concomitant]
     Indication: MENTAL DISORDER
     Dosage: 25 MG, QD
     Route: 048
  5. VENTOLIN HFA [Concomitant]
     Indication: ASTHMA
     Dosage: 90 MG, UNK
     Route: 045

REACTIONS (5)
  - INSOMNIA [None]
  - DRY MOUTH [None]
  - DIARRHOEA [None]
  - COUGH [None]
  - ABDOMINAL PAIN [None]
